FAERS Safety Report 4312454-X (Version None)
Quarter: 2004Q1

REPORT INFORMATION
  Report Type: 
  Country: None (occurrence: None)
  Receive Date: 20040305
  Receipt Date: 20040301
  Transmission Date: 20041129
  Serious: Yes (Other)
  Sender: FDA-Public Use
  Company Number: GB-ROCHE-360419

PATIENT
  Age: 63 Year
  Sex: Female
  Weight: 69 kg

DRUGS (3)
  1. NAPROXEN [Suspect]
     Indication: LOCALISED OSTEOARTHRITIS
     Route: 048
     Dates: start: 20031210, end: 20031222
  2. BETAHISTINE [Concomitant]
     Indication: MENIERE'S DISEASE
     Route: 048
     Dates: start: 19970615
  3. CALCICHEW D3 [Concomitant]
     Indication: OSTEOPOROSIS
     Route: 048
     Dates: start: 20000615

REACTIONS (5)
  - ANAPHYLACTIC REACTION [None]
  - CIRCULATORY COLLAPSE [None]
  - DIZZINESS [None]
  - LOSS OF CONSCIOUSNESS [None]
  - URTICARIA [None]
